FAERS Safety Report 22220229 (Version 2)
Quarter: 2023Q2

REPORT INFORMATION
  Report Type: Report from Study
  Country: US (occurrence: US)
  Receive Date: 20230417
  Receipt Date: 20230512
  Transmission Date: 20230721
  Serious: Yes (Other)
  Sender: FDA-Public Use
  Company Number: US-BAYER-2023A046323

PATIENT
  Age: 73 Year
  Sex: Female

DRUGS (1)
  1. STIVARGA [Suspect]
     Active Substance: REGORAFENIB
     Indication: Colon cancer
     Dosage: 120 MG, QD
     Route: 048
     Dates: end: 20230425

REACTIONS (9)
  - Dizziness [None]
  - Thrombocytopenia [Not Recovered/Not Resolved]
  - Haematochezia [None]
  - Diarrhoea [Recovering/Resolving]
  - Nausea [Not Recovered/Not Resolved]
  - Headache [None]
  - Weight decreased [Recovering/Resolving]
  - Liver function test abnormal [Recovering/Resolving]
  - Vomiting [Recovering/Resolving]

NARRATIVE: CASE EVENT DATE: 20230405
